FAERS Safety Report 18218158 (Version 1)
Quarter: 2020Q3

REPORT INFORMATION
  Report Type: Spontaneous
  Country: US (occurrence: US)
  Receive Date: 20200901
  Receipt Date: 20200901
  Transmission Date: 20201103
  Serious: No
  Sender: FDA-Public Use
  Company Number: US-MYLANLABS-2020M1073003

PATIENT
  Sex: Female

DRUGS (1)
  1. SCOPOLAMINE [Suspect]
     Active Substance: SCOPOLAMINE
     Indication: PRODUCT USED FOR UNKNOWN INDICATION
     Dosage: UNK
     Route: 062

REACTIONS (10)
  - Malaise [Unknown]
  - Product quality issue [Unknown]
  - Insomnia [Unknown]
  - Dry mouth [Unknown]
  - Therapeutic response decreased [Unknown]
  - Fatigue [Unknown]
  - Drug ineffective [Unknown]
  - Sinus disorder [Unknown]
  - Oropharyngeal discomfort [Unknown]
  - Motion sickness [Unknown]
